FAERS Safety Report 21104919 (Version 1)
Quarter: 2022Q3

REPORT INFORMATION
  Report Type: Spontaneous
  Country: US (occurrence: None)
  Receive Date: 20220719
  Receipt Date: 20220719
  Transmission Date: 20221027
  Serious: Yes (Hospitalization)
  Sender: FDA-Public Use
  Company Number: None

PATIENT
  Age: 83 Year
  Sex: Female

DRUGS (17)
  1. AMBRISENTAN [Suspect]
     Active Substance: AMBRISENTAN
     Indication: Pulmonary arterial hypertension
     Dosage: FREQUENCY : DAILY;?
     Route: 048
     Dates: start: 20160328
  2. SILDENAFIL [Concomitant]
  3. DEPAKOTE [Concomitant]
  4. LOSARTAN [Concomitant]
  5. DICLOFENAC TOP GEL [Concomitant]
  6. LEVOTHYROXINE [Concomitant]
  7. BUDESONIDE [Concomitant]
  8. GABAPENTIN [Concomitant]
  9. TYLENOL [Concomitant]
  10. LASIX [Concomitant]
  11. TRAZODONE [Concomitant]
  12. SPIRONOLACTONE [Concomitant]
  13. PRADAXA [Concomitant]
     Active Substance: DABIGATRAN ETEXILATE MESYLATE
  14. FLONASE [Concomitant]
  15. SIMVASTATIN [Concomitant]
  16. VITAMIN D3 [Concomitant]
  17. OXYGEN SUPPLEMENTAL [Concomitant]

REACTIONS (2)
  - Arthritis [None]
  - Rotator cuff syndrome [None]

NARRATIVE: CASE EVENT DATE: 20220616
